FAERS Safety Report 25532205 (Version 1)
Quarter: 2025Q3

REPORT INFORMATION
  Report Type: Spontaneous
  Country: EU (occurrence: EU)
  Receive Date: 20250709
  Receipt Date: 20250709
  Transmission Date: 20251021
  Serious: Yes (Hospitalization, Other)
  Sender: AUROBINDO
  Company Number: EU-AFSSAPS-NY2025000915

PATIENT
  Age: 93 Year
  Sex: Female
  Weight: 59 kg

DRUGS (10)
  1. RISPERIDONE [Suspect]
     Active Substance: RISPERIDONE
     Indication: Product used for unknown indication
     Route: 048
     Dates: start: 20250602, end: 20250602
  2. CYAMEMAZINE [Suspect]
     Active Substance: CYAMEMAZINE
     Indication: Wrong patient received product
     Route: 048
     Dates: start: 20250602, end: 20250602
  3. ARTANE [Suspect]
     Active Substance: TRIHEXYPHENIDYL HYDROCHLORIDE
     Indication: Wrong patient received product
     Route: 048
     Dates: start: 20250602, end: 20250602
  4. PANTOPRAZOLE [Concomitant]
     Active Substance: PANTOPRAZOLE
     Indication: Gastrooesophageal reflux disease
     Dosage: 40 MILLIGRAM, ONCE A DAY (0-0-1)
     Route: 048
  5. MOVICOL [Concomitant]
     Active Substance: POLYETHYLENE GLYCOL 3350\POTASSIUM CHLORIDE\SODIUM BICARBONATE\SODIUM CHLORIDE
     Indication: Constipation
     Dosage: 1 DOSAGE FORM, ONCE A DAY (1-0-0)
     Route: 048
  6. SKENAN [Concomitant]
     Active Substance: MORPHINE SULFATE
     Indication: Pain
     Dosage: 2 DOSAGE FORM, TWO TIMES A DAY (2-0-2)
     Route: 048
  7. ZESTORETIC [Concomitant]
     Active Substance: HYDROCHLOROTHIAZIDE\LISINOPRIL
     Indication: Hypertension
     Dosage: 20 MILLIGRAM, ONCE A DAY (1-0-0)
     Route: 048
  8. ATORVASTATIN [Concomitant]
     Active Substance: ATORVASTATIN
     Indication: Cardiovascular event prophylaxis
     Dosage: 10 MILLIGRAM, ONCE A DAY (0-0-1)
     Route: 048
  9. Calcidose [Concomitant]
     Indication: Mineral supplementation
     Dosage: 1 DOSAGE FORM, ONCE A DAY
     Route: 048
  10. KARDEGIC [Concomitant]
     Active Substance: ASPIRIN DL-LYSINE
     Indication: Cardiovascular event prophylaxis
     Dosage: 1 DOSAGE FORM, ONCE A DAY (1-0-0)
     Route: 048

REACTIONS (3)
  - Urinary retention [Recovered/Resolved]
  - Somnolence [Recovered/Resolved]
  - Wrong patient received product [Recovered/Resolved]

NARRATIVE: CASE EVENT DATE: 20250602
